FAERS Safety Report 9745029 (Version 6)
Quarter: 2014Q2

REPORT INFORMATION
  Report Type: Spontaneous
  Country: JP (occurrence: JP)
  Receive Date: 20131211
  Receipt Date: 20140604
  Transmission Date: 20141212
  Serious: Yes (Life-Threatening, Other)
  Sender: FDA-Public Use
  Company Number: JP-009507513-1312JPN003600

PATIENT
  Age: 37 Year
  Sex: Female
  Weight: 46 kg

DRUGS (7)
  1. PEGINTRON [Suspect]
     Indication: CHRONIC HEPATITIS C
     Dosage: DOSE: 60 MCG, QW,DIVIDED DOSE FREQUENCY UNKNOWN
     Route: 058
     Dates: start: 20100705, end: 20100708
  2. PEGINTRON [Suspect]
     Dosage: 80 ?G, DOSAGE INTERVAL: UNKNOWN
     Route: 058
     Dates: start: 20110531, end: 20111107
  3. REBETOL [Suspect]
     Indication: CHRONIC HEPATITIS C
     Dosage: 600 MG, QD DIVIDED DOSE FREQUENCY UNKNOWN
     Route: 048
     Dates: start: 20100705, end: 20100708
  4. REBETOL [Suspect]
     Dosage: DIVIDED DOSE FREQUENCY UNKNOWN
     Route: 048
     Dates: start: 20110531, end: 20111107
  5. URSO [Suspect]
     Dosage: 300 MG, TID POR
     Route: 048
     Dates: start: 20100219
  6. BEZATOL SR [Suspect]
     Dosage: 200 MG, BID
     Route: 048
     Dates: start: 20100219
  7. CORTRIL [Suspect]
     Dosage: DAILY DOSAGE UNKNOWN
     Route: 048
     Dates: start: 20100708

REACTIONS (3)
  - Shock [Recovered/Resolved]
  - Hypopituitarism [Recovered/Resolved]
  - Pyrexia [Recovered/Resolved]
